FAERS Safety Report 5289673-1 (Version None)
Quarter: 2007Q2

REPORT INFORMATION
  Report Type: 
  Country: None (occurrence: None)
  Receive Date: 20070406
  Receipt Date: 20070323
  Transmission Date: 20071010
  Serious: Yes (Other)
  Sender: FDA-Public Use
  Company Number: CA-GENENTECH-239396

PATIENT
  Sex: Female

DRUGS (4)
  1. HERCEPTIN [Suspect]
     Indication: BREAST CANCER
     Dosage: 511 MG, UNK
     Route: 042
     Dates: start: 20061114
  2. HERCEPTIN [Suspect]
     Dosage: 378 MG, Q3W
  3. HERCEPTIN [Suspect]
     Dosage: 570 MG, UNK
     Dates: start: 20070223
  4. TAXOL [Concomitant]
     Indication: BREAST CANCER
     Dates: start: 20061015, end: 20061211

REACTIONS (1)
  - HEPATOTOXICITY [None]
